FAERS Safety Report 21092390 (Version 3)
Quarter: 2022Q3

REPORT INFORMATION
  Report Type: Report from Study
  Country: CZ (occurrence: CZ)
  Receive Date: 20220718
  Receipt Date: 20220808
  Transmission Date: 20221027
  Serious: Yes (Death)
  Sender: FDA-Public Use
  Company Number: CZ-ABBVIE-22K-217-4470886-00

PATIENT
  Age: 71 Year
  Sex: Male

DRUGS (8)
  1. CARBIDOPA\LEVODOPA [Suspect]
     Active Substance: CARBIDOPA\LEVODOPA
     Indication: Parkinson^s disease
     Dosage: MORNING DOSE 18 ML, CONTINUOUS DOSE 8.8 ML/HOUR, EXTRA DOSE 4.5 ML
     Route: 050
     Dates: start: 20190429, end: 20220701
  2. CARBIDOPA\LEVODOPA [Suspect]
     Active Substance: CARBIDOPA\LEVODOPA
  3. MELPERONE HYDROCHLORIDE [Concomitant]
     Active Substance: MELPERONE HYDROCHLORIDE
     Indication: Restlessness
     Dosage: 1-1-1-2
     Route: 048
     Dates: start: 2019, end: 20220701
  4. TRINTELLIX [Concomitant]
     Active Substance: VORTIOXETINE HYDROBROMIDE
     Indication: Restlessness
     Dosage: 1-0-0
     Route: 048
     Dates: start: 2018, end: 20220701
  5. MIDODRINE HYDROCHLORIDE [Concomitant]
     Active Substance: MIDODRINE HYDROCHLORIDE
     Indication: Hypotension
     Dosage: 1-1-1
     Route: 048
     Dates: start: 20200109, end: 20220701
  6. DERIN [Concomitant]
     Indication: Restlessness
     Dosage: 0-0-1-0
     Route: 048
     Dates: start: 2020, end: 20220701
  7. FOLIC ACID;VITAMIN B COMPLEX [Concomitant]
     Indication: Prophylaxis
     Dosage: 1-0-0
     Route: 048
     Dates: start: 20190513, end: 20220701
  8. ESCHERICHIA COLI [Concomitant]
     Active Substance: ESCHERICHIA COLI
     Indication: Urinary tract infection
     Dosage: 1-0-0
     Route: 048
     Dates: start: 202109, end: 20220701

REACTIONS (1)
  - Cardiac failure [Fatal]

NARRATIVE: CASE EVENT DATE: 20220701
